FAERS Safety Report 9641836 (Version 1)
Quarter: 2013Q4

REPORT INFORMATION
  Report Type: Spontaneous
  Country: FR (occurrence: None)
  Receive Date: 20131021
  Receipt Date: 20131021
  Transmission Date: 20140711
  Serious: Yes (Other)
  Sender: FDA-Public Use
  Company Number: CIP-2013-00190

PATIENT
  Sex: Female

DRUGS (4)
  1. IRINOTECAN [Suspect]
     Indication: OVARIAN NEOPLASM
     Dosage: AT A TEMPERATURE OF 43 C FOR 30 MINUTES (360 MG/M2)
     Route: 033
  2. OXALIPLATIN [Suspect]
     Dosage: OR 360 MG/M2
     Route: 033
  3. 5- FLUOROURACIL [Concomitant]
  4. LEUCOVORIN (FOLINIC ACID) [Concomitant]

REACTIONS (2)
  - Cyst [None]
  - Lymphadenopathy [None]
